FAERS Safety Report 5916000-6 (Version None)
Quarter: 2008Q4

REPORT INFORMATION
  Report Type: 
  Country: None (occurrence: None)
  Receive Date: 20081013
  Receipt Date: 20081006
  Transmission Date: 20090506
  Serious: Yes (Death, Other)
  Sender: FDA-Public Use
  Company Number: US-JNJFOC-20080602682

PATIENT
  Sex: Female
  Weight: 77.11 kg

DRUGS (3)
  1. FENTANYL TRANSDERMAL SYSTEM [Suspect]
     Indication: PAIN MANAGEMENT
     Route: 062
  2. FENTANYL [Suspect]
     Indication: PAIN MANAGEMENT
     Route: 062
  3. WARFARIN SODIUM [Concomitant]
     Indication: ANTICOAGULANT THERAPY
     Route: 048

REACTIONS (5)
  - DEATH [None]
  - DRUG INEFFECTIVE [None]
  - MALAISE [None]
  - PERIPHERAL NERVOUS SYSTEM NEOPLASM [None]
  - PRODUCT QUALITY ISSUE [None]
